FAERS Safety Report 12118790 (Version 2)
Quarter: 2017Q1

REPORT INFORMATION
  Report Type: Report from Study
  Country: US (occurrence: US)
  Receive Date: 20160226
  Receipt Date: 20170303
  Transmission Date: 20170428
  Serious: Yes (Other)
  Sender: FDA-Public Use
  Company Number: US-ELI_LILLY_AND_COMPANY-US201602005570

PATIENT
  Sex: Male

DRUGS (1)
  1. OLANZAPINE. [Suspect]
     Active Substance: OLANZAPINE
     Indication: SCHIZOAFFECTIVE DISORDER BIPOLAR TYPE
     Dosage: 20 MG, QD
     Route: 065
     Dates: start: 2015

REACTIONS (7)
  - Abnormal behaviour [Unknown]
  - Aggression [Unknown]
  - Drug ineffective [Unknown]
  - Homicidal ideation [Unknown]
  - Withdrawal syndrome [Unknown]
  - Intentional self-injury [Unknown]
  - Incoherent [Unknown]
